FAERS Safety Report 5194786-9 (Version None)
Quarter: 2006Q4

REPORT INFORMATION
  Report Type: 
  Country: None (occurrence: None)
  Receive Date: 20061229
  Receipt Date: 20061218
  Transmission Date: 20070319
  Serious: Yes (Other)
  Sender: FDA-Public Use
  Company Number: US-AMGEN-US203928

PATIENT
  Sex: Male

DRUGS (1)
  1. ENBREL [Suspect]
     Indication: ANKYLOSING SPONDYLITIS
     Route: 058
     Dates: start: 20050810, end: 20060101

REACTIONS (12)
  - ARTHRALGIA [None]
  - BACK PAIN [None]
  - DRUG INEFFECTIVE [None]
  - NASAL CONGESTION [None]
  - RASH PUSTULAR [None]
  - SCAB [None]
  - SKIN EXFOLIATION [None]
  - SKIN FISSURES [None]
  - SKIN HAEMORRHAGE [None]
  - SKIN HYPERTROPHY [None]
  - SKIN TIGHTNESS [None]
  - THERAPEUTIC RESPONSE DECREASED [None]
